FAERS Safety Report 7337309-8 (Version None)
Quarter: 2011Q1

REPORT INFORMATION
  Report Type: 
  Country: None (occurrence: None)
  Receive Date: 20110308
  Receipt Date: 20110222
  Transmission Date: 20110831
  Serious: Yes (Other)
  Sender: FDA-Public Use
  Company Number: US-CELGENEUS-163-21880-11022719

PATIENT
  Sex: Male
  Weight: 72.64 kg

DRUGS (12)
  1. ROBAXIN [Concomitant]
     Dosage: 750 MILLIGRAM
     Route: 048
     Dates: start: 20100901
  2. FENTANYL [Concomitant]
     Route: 062
     Dates: start: 20101201
  3. CRESTOR [Concomitant]
     Dosage: 10 MILLIGRAM
     Route: 048
     Dates: start: 20020101
  4. POLYETHYLENE GLYCOL [Concomitant]
     Route: 065
     Dates: start: 20100901
  5. TRAMADOL [Concomitant]
     Route: 048
     Dates: start: 20101006, end: 20101201
  6. REVLIMID [Suspect]
     Dosage: 25 MILLIGRAM
     Route: 048
     Dates: start: 20101101
  7. LOTREL [Concomitant]
     Dosage: 10/20
     Route: 048
     Dates: start: 20040101
  8. VALERIAN ROOT [Concomitant]
     Dosage: 3
     Route: 048
     Dates: start: 20101003
  9. REVLIMID [Suspect]
     Indication: MULTIPLE MYELOMA
     Dosage: 15 MILLIGRAM
     Route: 048
     Dates: start: 20101001
  10. TYLENOL [Concomitant]
     Route: 048
     Dates: start: 20100901
  11. DEXAMETHASONE [Concomitant]
     Dosage: 40 MILLIGRAM
     Route: 048
  12. METFORMIN [Concomitant]
     Dosage: 500 MILLIGRAM
     Route: 048
     Dates: start: 20050101

REACTIONS (4)
  - PAIN IN EXTREMITY [None]
  - SKIN DISCOLOURATION [None]
  - SKIN EXFOLIATION [None]
  - ERYTHEMA [None]
